FAERS Safety Report 8969627 (Version 1)
Quarter: 2012Q4

REPORT INFORMATION
  Report Type: 
  Country: US (occurrence: US)
  Receive Date: 20121218
  Receipt Date: 20121218
  Transmission Date: 20130627
  Serious: No
  Sender: FDA-Public Use
  Company Number: US-TEVA-373686USA

PATIENT
  Sex: Female
  Weight: 68.1 kg

DRUGS (3)
  1. NUVIGIL [Suspect]
     Indication: FATIGUE
     Dosage: 250 Milligram Daily;
     Route: 048
  2. ADDERALL [Concomitant]
  3. AMBIEN [Concomitant]
     Dosage: 1/2 tablet at bedtime
     Route: 048

REACTIONS (3)
  - Mouth ulceration [Unknown]
  - Intentional drug misuse [Unknown]
  - Off label use [Unknown]
